FAERS Safety Report 11803252 (Version 1)
Quarter: 2015Q4

REPORT INFORMATION
  Report Type: Spontaneous
  Country: CN (occurrence: CN)
  Receive Date: 20151204
  Receipt Date: 20151204
  Transmission Date: 20160305
  Serious: Yes (Hospitalization, Other)
  Sender: FDA-Public Use
  Company Number: CN-GILEAD-2015-0186105

PATIENT
  Age: 52 Year
  Sex: Male

DRUGS (2)
  1. LAMIVUDINE. [Suspect]
     Active Substance: LAMIVUDINE
     Indication: HEPATITIS B
     Dosage: 100 MG, QD
     Route: 065
     Dates: start: 2007
  2. ADEFOVIR DIPIVOXIL. [Suspect]
     Active Substance: ADEFOVIR DIPIVOXIL
     Indication: HEPATITIS B
     Dosage: 10 MG, QD
     Route: 065
     Dates: start: 2007

REACTIONS (10)
  - Muscular weakness [Unknown]
  - Hypophosphataemia [Recovering/Resolving]
  - Osteoporosis [Unknown]
  - Condition aggravated [Unknown]
  - Arthralgia [Unknown]
  - Alopecia [Unknown]
  - Myalgia [Unknown]
  - Mouth ulceration [Unknown]
  - Osteomalacia [Recovering/Resolving]
  - Muscle atrophy [Unknown]
